FAERS Safety Report 9132090 (Version 3)
Quarter: 2013Q2

REPORT INFORMATION
  Report Type: Report from Study
  Country: US (occurrence: US)
  Receive Date: 20130301
  Receipt Date: 20130523
  Transmission Date: 20140414
  Serious: Yes (Death, Other)
  Sender: FDA-Public Use
  Company Number: US-ABBOTT-13P-163-1035356-00

PATIENT
  Age: 81 Year
  Sex: Female

DRUGS (4)
  1. HUMIRA PEN [Suspect]
     Indication: CROHN^S DISEASE
     Route: 058
     Dates: start: 20121001, end: 201212
  2. HUMIRA PEN [Suspect]
     Route: 058
     Dates: start: 201212
  3. UNKNOWN MEDICATIONS [Concomitant]
     Indication: CROHN^S DISEASE
  4. UNKNOWN MEDICATIONS [Concomitant]
     Indication: ARTHRITIS

REACTIONS (21)
  - Cardiac disorder [Fatal]
  - Local swelling [Fatal]
  - Activities of daily living impaired [Fatal]
  - Crohn^s disease [Fatal]
  - Asthenia [Fatal]
  - Confusional state [Fatal]
  - Dementia [Fatal]
  - Diarrhoea [Fatal]
  - Cardio-respiratory arrest [Fatal]
  - Anaemia [Fatal]
  - Enterocolitis haemorrhagic [Fatal]
  - Cardiac failure congestive [Fatal]
  - Haemoglobin decreased [Not Recovered/Not Resolved]
  - General physical health deterioration [Unknown]
  - Crohn^s disease [Not Recovered/Not Resolved]
  - Rectal haemorrhage [Not Recovered/Not Resolved]
  - Arthritis [Not Recovered/Not Resolved]
  - Anal injury [Not Recovered/Not Resolved]
  - Drug ineffective [Not Recovered/Not Resolved]
  - Asthenia [Not Recovered/Not Resolved]
  - Diarrhoea [Not Recovered/Not Resolved]
